FAERS Safety Report 23825396 (Version 1)
Quarter: 2024Q2

REPORT INFORMATION
  Report Type: Spontaneous
  Country: US (occurrence: US)
  Receive Date: 20240507
  Receipt Date: 20240507
  Transmission Date: 20240716
  Serious: Yes (Other)
  Sender: FDA-Public Use
  Company Number: US-PFIZER INC-202400099882

PATIENT
  Age: 66 Year
  Sex: Female

DRUGS (3)
  1. LORBRENA [Suspect]
     Active Substance: LORLATINIB
     Indication: Non-small cell lung cancer stage IV
     Dosage: 100MG ONCE A DAY IN THE MORNING
     Route: 048
     Dates: start: 2023
  2. LORBRENA [Suspect]
     Active Substance: LORLATINIB
     Indication: Metastases to central nervous system
  3. ROSUVASTATIN [Concomitant]
     Active Substance: ROSUVASTATIN
     Indication: Blood cholesterol abnormal
     Dosage: INSISTED ON THE MINIMUM DOSE OF 10MG ONCE A DAY

REACTIONS (12)
  - Neuropathy peripheral [Unknown]
  - Brain radiation necrosis [Unknown]
  - Dupuytren^s contracture [Unknown]
  - Paraesthesia [Unknown]
  - Skin discolouration [Unknown]
  - Cyanosis [Unknown]
  - Pain in extremity [Unknown]
  - Joint swelling [Unknown]
  - Raynaud^s phenomenon [Recovered/Resolved]
  - Musculoskeletal stiffness [Unknown]
  - Oedema peripheral [Not Recovered/Not Resolved]
  - Hypoaesthesia [Unknown]
